FAERS Safety Report 9428205 (Version 1)
Quarter: 2013Q3

REPORT INFORMATION
  Report Type: Report from Study
  Country: TW (occurrence: TW)
  Receive Date: 20130730
  Receipt Date: 20130730
  Transmission Date: 20140515
  Serious: Yes (Hospitalization)
  Sender: FDA-Public Use
  Company Number: TW-SANOFI-AVENTIS-2013SA047973

PATIENT
  Age: 59 Year
  Sex: Male
  Weight: 85 kg

DRUGS (8)
  1. CLOPIDOGREL BISULFATE [Suspect]
     Indication: ACUTE CORONARY SYNDROME
     Route: 048
     Dates: start: 20130101
  2. ASPIRIN [Suspect]
     Indication: ACUTE CORONARY SYNDROME
     Route: 048
     Dates: start: 20120211
  3. ALUMINIUM HYDROXIDE [Concomitant]
     Route: 048
  4. THIAMINE [Concomitant]
     Route: 065
  5. BEESIX [Concomitant]
     Dosage: DOSE:1 UNIT(S)
     Route: 048
  6. FOLIC ACID [Concomitant]
     Dosage: DOSE:1 UNIT(S)
     Route: 048
  7. MOSAPRIDE [Concomitant]
     Dosage: DOSE:1 UNIT(S)
     Route: 048
  8. CORDARONE [Concomitant]
     Dosage: DOSE:1 UNIT(S)
     Route: 048

REACTIONS (4)
  - Cardiac failure congestive [Recovered/Resolved]
  - Acute pulmonary oedema [Recovered/Resolved]
  - Ventricular fibrillation [Recovered/Resolved]
  - Septic shock [Recovered/Resolved]
